FAERS Safety Report 8817956 (Version 1)
Quarter: 2012Q4

REPORT INFORMATION
  Report Type: 
  Country: US (occurrence: US)
  Receive Date: 20121001
  Receipt Date: 20121001
  Transmission Date: 20130627
  Serious: No
  Sender: FDA-Public Use
  Company Number: US-SANOFI-AVENTIS-2012SA050407

PATIENT
  Age: 82 Year
  Sex: Male
  Weight: 55.3 kg

DRUGS (3)
  1. ELIGARD [Suspect]
     Indication: CANCER
     Route: 065
     Dates: start: 2011, end: 2011
  2. ELIGARD [Suspect]
     Indication: CANCER
     Route: 065
  3. ACTONEL [Concomitant]

REACTIONS (3)
  - Joint stiffness [Not Recovered/Not Resolved]
  - Joint swelling [Not Recovered/Not Resolved]
  - Arthralgia [Not Recovered/Not Resolved]
